FAERS Safety Report 17726951 (Version 1)
Quarter: 2020Q2

REPORT INFORMATION
  Report Type: Spontaneous
  Country: US (occurrence: US)
  Receive Date: 20200430
  Receipt Date: 20200430
  Transmission Date: 20200714
  Serious: Yes (Death, Other)
  Sender: FDA-Public Use
  Company Number: US-009507513-2004USA007029

PATIENT
  Sex: Male
  Weight: 59.4 kg

DRUGS (1)
  1. KEYTRUDA [Suspect]
     Active Substance: PEMBROLIZUMAB
     Indication: BREAST CANCER
     Dosage: STRENGTH:100/4 MILLIGRAM PER MILLILITRES (MG/ML), 200 MG EVERY THREE WEEKS (Q3W)
     Route: 048
     Dates: start: 20190903, end: 20191125

REACTIONS (1)
  - Death [Fatal]

NARRATIVE: CASE EVENT DATE: 20191125
